FAERS Safety Report 4871596-0 (Version None)
Quarter: 2005Q4

REPORT INFORMATION
  Report Type: 
  Country: None (occurrence: None)
  Receive Date: 20051230
  Receipt Date: 20051215
  Transmission Date: 20060501
  Serious: Yes (Hospitalization)
  Sender: FDA-Public Use
  Company Number: 02100-JPN-05-0611

PATIENT
  Age: 74 Year
  Sex: Male

DRUGS (6)
  1. CILOSTAZOL [Suspect]
     Indication: LACUNAR INFARCTION
     Dosage: 200 MG
     Route: 048
     Dates: start: 20040107, end: 20051109
  2. MOSAPRIDE CITRATE [Concomitant]
  3. LISINOPRIL [Concomitant]
  4. NIFEDIPINE [Concomitant]
  5. ALLOPURINOL [Concomitant]
  6. FERROUS SULFATE TAB [Concomitant]

REACTIONS (2)
  - GASTRIC ULCER HAEMORRHAGE [None]
  - STRESS ULCER [None]
